FAERS Safety Report 17116310 (Version 1)
Quarter: 2019Q4

REPORT INFORMATION
  Report Type: Report from Study
  Country: JP (occurrence: JP)
  Receive Date: 20191205
  Receipt Date: 20191205
  Transmission Date: 20200122
  Serious: Yes (Life-Threatening, Hospitalization)
  Sender: FDA-Public Use
  Company Number: JP-ELI_LILLY_AND_COMPANY-JP201811000105

PATIENT
  Age: 61 Year
  Sex: Female
  Weight: 29 kg

DRUGS (11)
  1. CETUXIMAB. [Suspect]
     Active Substance: CETUXIMAB
     Indication: COLON CANCER
     Dosage: 400 MG/M2, UNKNOWN
     Route: 041
     Dates: start: 20180717, end: 20180717
  2. OXALIPLATIN. [Concomitant]
     Active Substance: OXALIPLATIN
     Dosage: 65 MG/M2, ONCE EVERY 2 WEEKS (2ND TO 3RD DOSE 78 MG/BODY)
     Route: 041
  3. 5 FU [Concomitant]
     Active Substance: FLUOROURACIL
     Dosage: 2000 MG/M2, EVERY 2 WEEKS (4TH TO 5TH DOSE 2340 MG/BODY)
     Route: 041
     Dates: end: 20181003
  4. LEVOFOLINATE                       /06682103/ [Concomitant]
     Active Substance: LEVOLEUCOVORIN CALCIUM
     Indication: COLON CANCER
     Dosage: 200 MG/M2, ONCE EVERY 2 WEEKS (250 MG/BODY)
     Route: 041
     Dates: start: 20180717, end: 20181003
  5. 5 FU [Concomitant]
     Active Substance: FLUOROURACIL
     Indication: COLON CANCER
     Dosage: 2400 MG/M2, EVERY 2 WEEKS (1ST TO 3RD DOSE 3000 MG/BODY)
     Route: 041
     Dates: start: 20180717
  6. CETUXIMAB. [Suspect]
     Active Substance: CETUXIMAB
     Dosage: 250 MG/M2, UNKNOWN (FROM 2ND TO 6TH DOSE 312 MG/BODY; FROM 7TH TO 10TH DOSE 292 MG/BODY )
     Route: 041
     Dates: start: 20180725, end: 20181010
  7. CAMPTO [Concomitant]
     Active Substance: IRINOTECAN
     Indication: COLON CANCER
     Dosage: 150 MG/M2, ONCE EVERY 2 WEEKS (1ST DOSE 187MG/BODY)
     Route: 041
     Dates: start: 20180717
  8. CAMPTO [Concomitant]
     Active Substance: IRINOTECAN
     Dosage: 125 MG/M2, ONCE EVERY 2 WEEKS (2ND TO 3RD DOSE 150 MG/BODY)
     Route: 041
  9. OXALIPLATIN. [Concomitant]
     Active Substance: OXALIPLATIN
     Dosage: 50 MG/M2, ONCE EVERY 2 WEEKS (4TH TO 5TH DOSE 59MG/BODY)
     Route: 041
     Dates: end: 20181003
  10. CAMPTO [Concomitant]
     Active Substance: IRINOTECAN
     Dosage: 100 MG/M2, ONCE EVERY 2 WEEKS (4TH TO 5TH DOSE 117 MG/BODY)
     Route: 041
     Dates: end: 20181003
  11. OXALIPLATIN. [Concomitant]
     Active Substance: OXALIPLATIN
     Indication: COLON CANCER
     Dosage: 85 MG/M2, ONCE EVERY 2 WEEKS (1ST DOSE 106 MG/BODY)
     Route: 041
     Dates: start: 20180717

REACTIONS (1)
  - Stress cardiomyopathy [Recovered/Resolved]

NARRATIVE: CASE EVENT DATE: 20181023
